FAERS Safety Report 23885786 (Version 1)
Quarter: 2024Q2

REPORT INFORMATION
  Report Type: Spontaneous
  Country: US (occurrence: None)
  Receive Date: 20240522
  Receipt Date: 20240522
  Transmission Date: 20240715
  Serious: Yes (Other)
  Sender: FDA-Public Use
  Company Number: None

PATIENT
  Sex: Male
  Weight: 71.5 kg

DRUGS (1)
  1. ADBRY [Suspect]
     Active Substance: TRALOKINUMAB-LDRM
     Dosage: 300 MG/ML EVERY TWO WEEKS SUBCUTANEOUS?
     Route: 058
     Dates: start: 20240106, end: 20240520

REACTIONS (1)
  - Injection site urticaria [None]
